FAERS Safety Report 9144372 (Version 1)
Quarter: 2013Q1

REPORT INFORMATION
  Report Type: Report from Study
  Country: US (occurrence: US)
  Receive Date: 20130306
  Receipt Date: 20130306
  Transmission Date: 20140127
  Serious: Yes (Other)
  Sender: FDA-Public Use
  Company Number: US-ROCHE-1197593

PATIENT
  Sex: 0

DRUGS (2)
  1. BEVACIZUMAB [Suspect]
     Indication: ANGIOSARCOMA
     Dosage: RECEIVED 3 CYCLES DOSE OF 3004 MG.
     Route: 042
     Dates: start: 20080207
  2. BEVACIZUMAB [Suspect]
     Indication: INTRAVASCULAR PAPILLARY ENDOTHELIAL HYPERPLASIA

REACTIONS (3)
  - Dyspnoea [Unknown]
  - Pleural effusion [Unknown]
  - Cardiac failure congestive [Unknown]
